FAERS Safety Report 4429746-6 (Version None)
Quarter: 2004Q3

REPORT INFORMATION
  Report Type: 
  Country: None (occurrence: None)
  Receive Date: 20040816
  Receipt Date: 20040803
  Transmission Date: 20050211
  Serious: Yes (Other)
  Sender: FDA-Public Use
  Company Number: HQWYE204712AUG04

PATIENT
  Sex: Female

DRUGS (1)
  1. ADVIL [Suspect]
     Indication: HEADACHE
     Dosage: 200MG TAB ORAL
     Route: 048
     Dates: start: 20040802, end: 20040802

REACTIONS (1)
  - HYPERSENSITIVITY [None]
